FAERS Safety Report 8509865-5 (Version None)
Quarter: 2012Q3

REPORT INFORMATION
  Report Type: 
  Country: None (occurrence: None)
  Receive Date: 20120713
  Receipt Date: 20120702
  Transmission Date: 20120928
  Serious: Yes (Death, Hospitalization)
  Sender: FDA-Public Use
  Company Number: US-ACTELION-A-NJ2010-37182

PATIENT

DRUGS (7)
  1. TRACLEER [Suspect]
     Dosage: 62.5 MG, BID
     Route: 048
     Dates: start: 20100123, end: 20100223
  2. TRACLEER [Suspect]
     Dosage: UNK
     Route: 048
     Dates: start: 20100101, end: 20100701
  3. PLAVIX [Concomitant]
  4. TRACLEER [Suspect]
     Dosage: 125 MG, BID
     Route: 048
     Dates: start: 20100224, end: 20100615
  5. TRACLEER [Suspect]
     Indication: PULMONARY ARTERIAL HYPERTENSION
     Dosage: UNK
     Route: 048
     Dates: start: 20100721
  6. COUMADIN [Concomitant]
  7. TYVASO [Concomitant]

REACTIONS (12)
  - DEATH [None]
  - URINARY TRACT INFECTION [None]
  - PYREXIA [None]
  - PULMONARY ARTERIAL HYPERTENSION [None]
  - ABNORMAL LOSS OF WEIGHT [None]
  - RENAL FAILURE [None]
  - RENAL DISORDER [None]
  - DYSPNOEA [None]
  - FLUID OVERLOAD [None]
  - DIALYSIS [None]
  - SEPSIS [None]
  - CARDIAC FAILURE CONGESTIVE [None]
